FAERS Safety Report 10527342 (Version 3)
Quarter: 2015Q1

REPORT INFORMATION
  Report Type: Spontaneous
  Country: DE (occurrence: None)
  Receive Date: 20141016
  Receipt Date: 20150211
  Transmission Date: 20150720
  Serious: Yes (Death, Life-Threatening, Hospitalization, Disabling, Other)
  Sender: FDA-Public Use
  Company Number: DE-MDCO-14-00258

PATIENT
  Age: 82 Year
  Sex: Male
  Weight: 63 kg

DRUGS (13)
  1. DORMICUM (MIDAZOLAM) (MIDAZOLAM) [Concomitant]
  2. ACETYLSALICYLIC ACID [Suspect]
     Active Substance: ASPIRIN
     Indication: THROMBOSIS PROPHYLAXIS
     Route: 048
     Dates: start: 20140110
  3. MORPHINUM (MORPHINE) (MORPHINE) [Concomitant]
  4. CLOPIDOGREL [Suspect]
     Active Substance: CLOPIDOGREL BISULFATE
     Indication: THROMBOSIS PROPHYLAXIS
     Route: 048
     Dates: start: 20140110
  5. HEPARIN [Suspect]
     Active Substance: HEPARIN SODIUM
     Indication: PRODUCT USED FOR UNKNOWN INDICATION
     Dosage: 1 IN 1 TOTAL
     Route: 042
     Dates: start: 20140110
  6. BRILIQUE [Suspect]
     Active Substance: TICAGRELOR
     Indication: PERCUTANEOUS CORONARY INTERVENTION
     Dosage: 1 IN 1 TOTAL
     Route: 048
     Dates: start: 20140110
  7. ANGIOX (BIVALIRUDIN MARKETED) (BIVALIRUDIN) (BIVALIRUDIN) [Suspect]
     Active Substance: BIVALIRUDIN
     Indication: PERCUTANEOUS CORONARY INTERVENTION
     Dosage: 9.5 ML (5 MG/ML) 1 IN 1 TOTAL INTAVENOUS BOLUS
     Route: 040
     Dates: start: 20140110, end: 20140110
  8. BRILIQUE [Suspect]
     Active Substance: TICAGRELOR
     Indication: THROMBOSIS PROPHYLAXIS
     Dosage: 1 IN 1 TOTAL
     Route: 048
     Dates: start: 20140110
  9. CEFAZOLIN (CEFAZOLIN) (CEFAZOLIN) [Concomitant]
  10. ACETYLSALICYLIC ACID [Concomitant]
     Active Substance: ASPIRIN
  11. RAMIPRIL (RAMIPRIL) (RAMIPRIL) [Concomitant]
     Active Substance: RAMIPRIL
  12. BISOPROLOL (BISOPROLOL) (BISOPROLOL) [Concomitant]
  13. SIMVASTATIN (SIMVASTATIN) (SIMVASTATIN) [Concomitant]
     Active Substance: SIMVASTATIN

REACTIONS (12)
  - Acute myocardial infarction [None]
  - Cardiogenic shock [None]
  - Reperfusion injury [None]
  - Procedural complication [None]
  - Intrapericardial thrombosis [None]
  - Thrombosis in device [None]
  - Pulseless electrical activity [None]
  - Myocardial infarction [None]
  - Drug dose omission [None]
  - Inappropriate schedule of drug administration [None]
  - Cardiac tamponade [None]
  - Pericardial haemorrhage [None]

NARRATIVE: CASE EVENT DATE: 20140110
